FAERS Safety Report 25133992 (Version 1)
Quarter: 2025Q1

REPORT INFORMATION
  Report Type: Spontaneous
  Country: US (occurrence: US)
  Receive Date: 20250328
  Receipt Date: 20250328
  Transmission Date: 20250409
  Serious: Yes (Other)
  Sender: DR REDDYS
  Company Number: US-DRL-USA-USA/2025/03/004418

PATIENT
  Age: 55 Year
  Sex: Female

DRUGS (5)
  1. METOPROLOL SUCCINATE [Suspect]
     Active Substance: METOPROLOL SUCCINATE
     Indication: Secondary hypertension
  2. CLONIDINE [Suspect]
     Active Substance: CLONIDINE
     Indication: Secondary hypertension
     Dosage: 0.1MG TWICE DAILY
  3. CARVEDILOL [Suspect]
     Active Substance: CARVEDILOL
     Indication: Secondary hypertension
  4. BUSPIRONE [Suspect]
     Active Substance: BUSPIRONE HYDROCHLORIDE
     Indication: Secondary hypertension
  5. LISINOPRIL [Concomitant]
     Active Substance: LISINOPRIL
     Indication: Secondary hypertension
     Dosage: 40 MG ONCE DAILY

REACTIONS (1)
  - Drug ineffective [Unknown]
